FAERS Safety Report 10083573 (Version 1)
Quarter: 2014Q2

REPORT INFORMATION
  Report Type: Spontaneous
  Country: US (occurrence: None)
  Receive Date: 20140416
  Receipt Date: 20140416
  Transmission Date: 20141212
  Serious: Yes (Hospitalization)
  Sender: FDA-Public Use
  Company Number: None

PATIENT
  Age: 1 Month
  Sex: 0
  Weight: 81.65 kg

DRUGS (1)
  1. BRILINTA 90 MG TABS [Suspect]
     Indication: STENT PLACEMENT
     Dates: start: 20140312, end: 20140409

REACTIONS (1)
  - Dyspnoea [None]
